FAERS Safety Report 15968810 (Version 3)
Quarter: 2021Q2

REPORT INFORMATION
  Report Type: Report from Study
  Country: US (occurrence: US)
  Receive Date: 20190215
  Receipt Date: 20210525
  Transmission Date: 20210716
  Serious: Yes (Hospitalization, Other)
  Sender: FDA-Public Use
  Company Number: US-SHIRE-US201849025

PATIENT
  Age: 62 Year
  Sex: Female
  Weight: 65.76 kg

DRUGS (34)
  1. TYLENOL [Concomitant]
     Active Substance: ACETAMINOPHEN
     Indication: CELLULITIS
  2. BENADRYL [Concomitant]
     Active Substance: DIPHENHYDRAMINE HYDROCHLORIDE
     Indication: PRURITUS
  3. MORPHINE SULPHATE [Concomitant]
     Active Substance: MORPHINE SULFATE
     Indication: PRODUCT USED FOR UNKNOWN INDICATION
  4. SYNTHROID [Concomitant]
     Active Substance: LEVOTHYROXINE SODIUM
     Indication: HYPOTHYROIDISM
  5. ANTIVERT [Concomitant]
     Active Substance: MECLIZINE HYDROCHLORIDE
     Indication: NAUSEA
  6. MELOXICAM. [Concomitant]
     Active Substance: MELOXICAM
     Indication: PAIN
  7. OXYCODONE [Concomitant]
     Active Substance: OXYCODONE
     Indication: PAIN
  8. KLOR?CON [Concomitant]
     Active Substance: POTASSIUM CHLORIDE
     Indication: PRODUCT USED FOR UNKNOWN INDICATION
  9. FLAGYL [Concomitant]
     Active Substance: METRONIDAZOLE\METRONIDAZOLE HYDROCHLORIDE
     Indication: PRODUCT USED FOR UNKNOWN INDICATION
  10. PARATHYROID HORMONE [Suspect]
     Active Substance: PARATHYROID HORMONE
     Indication: HYPOPARATHYROIDISM
     Route: 065
  11. PARATHYROID HORMONE [Suspect]
     Active Substance: PARATHYROID HORMONE
     Indication: HYPOPARATHYROIDISM
     Route: 065
  12. QUESTRAN [Concomitant]
     Active Substance: CHOLESTYRAMINE
     Indication: HYPERLIPIDAEMIA
  13. EPINEPHRINE. [Concomitant]
     Active Substance: EPINEPHRINE
     Indication: ALLERGY TO ARTHROPOD STING
  14. ALENDRONATE SODIUM. [Concomitant]
     Active Substance: ALENDRONATE SODIUM
     Indication: PRODUCT USED FOR UNKNOWN INDICATION
  15. PYLERA [Concomitant]
     Active Substance: BISMUTH SUBCITRATE POTASSIUM\METRONIDAZOLE\TETRACYCLINE HYDROCHLORIDE
     Indication: PRODUCT USED FOR UNKNOWN INDICATION
  16. PARATHYROID HORMONE [Suspect]
     Active Substance: PARATHYROID HORMONE
     Indication: HYPOPARATHYROIDISM
     Route: 065
  17. DOCUSATE SODIUM. [Concomitant]
     Active Substance: DOCUSATE SODIUM
     Indication: CONSTIPATION
  18. MORPHINE [Concomitant]
     Active Substance: MORPHINE
     Indication: PAIN
  19. VITAMIN D3 [Concomitant]
     Active Substance: CHOLECALCIFEROL
     Indication: HYPOPARATHYROIDISM
  20. ALEVE [Concomitant]
     Active Substance: NAPROXEN SODIUM
     Indication: PRODUCT USED FOR UNKNOWN INDICATION
  21. DOXYCYCLIN [Concomitant]
     Active Substance: DOXYCYCLINE
     Indication: CELLULITIS
  22. ALLOPURINOL. [Concomitant]
     Active Substance: ALLOPURINOL
     Indication: GOUT
  23. ALBUTEROL. [Concomitant]
     Active Substance: ALBUTEROL
     Indication: PRODUCT USED FOR UNKNOWN INDICATION
  24. LIDOCAINE. [Concomitant]
     Active Substance: LIDOCAINE
     Indication: PAIN
  25. ATIVAN [Concomitant]
     Active Substance: LORAZEPAM
     Indication: ANXIETY
  26. CARBIDOPA. [Concomitant]
     Active Substance: CARBIDOPA
     Indication: PRODUCT USED FOR UNKNOWN INDICATION
  27. PROTONIX [Concomitant]
     Active Substance: PANTOPRAZOLE SODIUM
     Indication: PRODUCT USED FOR UNKNOWN INDICATION
  28. VARENICLINE [Concomitant]
     Active Substance: VARENICLINE
     Indication: SMOKING CESSATION THERAPY
  29. CALCITRIOL. [Concomitant]
     Active Substance: CALCITRIOL
     Indication: HYPOTHYROIDISM
  30. SINEMET [Concomitant]
     Active Substance: CARBIDOPA\LEVODOPA
     Indication: RESTLESS LEGS SYNDROME
  31. GABAPENTIN. [Concomitant]
     Active Substance: GABAPENTIN
     Indication: NEUROPATHY PERIPHERAL
  32. TRAZODONE [Concomitant]
     Active Substance: TRAZODONE HYDROCHLORIDE
     Indication: INSOMNIA
  33. TUMS [Concomitant]
     Active Substance: CALCIUM CARBONATE
     Indication: HYPOPARATHYROIDISM
  34. CARISOPRODOL. [Concomitant]
     Active Substance: CARISOPRODOL
     Indication: PRODUCT USED FOR UNKNOWN INDICATION

REACTIONS (5)
  - Pseudomonas infection [Recovered/Resolved]
  - Chest pain [Recovered/Resolved]
  - Cellulitis [Recovered/Resolved]
  - Small intestinal obstruction [Recovered/Resolved]
  - Peptic ulcer [Not Recovered/Not Resolved]

NARRATIVE: CASE EVENT DATE: 2018
